FAERS Safety Report 9636502 (Version 1)
Quarter: 2013Q4

REPORT INFORMATION
  Report Type: Spontaneous
  Country: US (occurrence: None)
  Receive Date: 20131017
  Receipt Date: 20131017
  Transmission Date: 20140711
  Serious: Yes (Hospitalization)
  Sender: FDA-Public Use
  Company Number: ACO_37319_2013

PATIENT
  Age: 51 Year
  Sex: Male
  Weight: 83.9 kg

DRUGS (7)
  1. AMPYRA [Suspect]
     Indication: GAIT DISTURBANCE
     Route: 048
     Dates: start: 201108, end: 2013
  2. TYSABRI (NATALIZUMAB) [Concomitant]
  3. LISINOPRIL (LISINOPRIL) [Concomitant]
  4. SIMVASTATIN (SIMVASTATIN) [Concomitant]
  5. ZOLOFT (SERTRALINE HYDROCHLORIDE) [Concomitant]
  6. KOMBIGLYZE (METFORMIN HYDROCHLORIDE, SAXAGLIPTIN HYDROCHLORIDE) [Concomitant]
  7. BACLOFEN (BACLOFEN) [Concomitant]

REACTIONS (8)
  - Transient ischaemic attack [None]
  - Seizure like phenomena [None]
  - Hypoglycaemia [None]
  - Dyspnoea [None]
  - Chest discomfort [None]
  - Tremor [None]
  - Malaise [None]
  - Drug ineffective [None]
